FAERS Safety Report 12486656 (Version 1)
Quarter: 2016Q2

REPORT INFORMATION
  Report Type: Report from Study
  Country: RU (occurrence: RU)
  Receive Date: 20160621
  Receipt Date: 20160621
  Transmission Date: 20160815
  Serious: Yes (Life-Threatening, Other)
  Sender: FDA-Public Use
  Company Number: RU-BAYER-2016-117920

PATIENT
  Age: 43 Year
  Sex: Female

DRUGS (1)
  1. JANIN [Suspect]
     Active Substance: DIENOGEST\ESTRADIOL VALERATE
     Indication: ENDOMETRIOSIS
     Dosage: DNG 2000?G/EE 30?G
     Route: 048
     Dates: start: 201401, end: 201502

REACTIONS (7)
  - Hypertension [None]
  - Renal cell carcinoma [None]
  - Asthenia [None]
  - Back pain [None]
  - Tachycardia [None]
  - Renal vein thrombosis [None]
  - Feeling abnormal [None]

NARRATIVE: CASE EVENT DATE: 201502
